FAERS Safety Report 7041575-6 (Version None)
Quarter: 2010Q4

REPORT INFORMATION
  Report Type: 
  Country: None (occurrence: None)
  Receive Date: 20101013
  Receipt Date: 20100524
  Transmission Date: 20110411
  Serious: No
  Sender: FDA-Public Use
  Company Number: US-ASTRAZENECA-2010SE23817

PATIENT
  Sex: Female

DRUGS (1)
  1. SYMBICORT [Suspect]
     Dosage: 160/.45 2 PUFFS BID
     Route: 055

REACTIONS (2)
  - EUSTACHIAN TUBE DISORDER [None]
  - TINNITUS [None]
